FAERS Safety Report 6671545-9 (Version None)
Quarter: 2010Q2

REPORT INFORMATION
  Report Type: 
  Country: None (occurrence: None)
  Receive Date: 20100406
  Receipt Date: 20100406
  Transmission Date: 20101027
  Serious: Yes (Hospitalization)
  Sender: FDA-Public Use
  Company Number: None

PATIENT
  Age: 18 Year
  Sex: Male
  Weight: 86.1834 kg

DRUGS (2)
  1. TRAMADOL HCL [Suspect]
     Indication: MIGRAINE
     Dates: start: 20090801, end: 20100402
  2. ZONEGRAN [Concomitant]

REACTIONS (1)
  - CONVULSION [None]
